FAERS Safety Report 5563377-X (Version None)
Quarter: 2007Q4

REPORT INFORMATION
  Report Type: 
  Country: None (occurrence: None)
  Receive Date: 20071217
  Receipt Date: 20070702
  Transmission Date: 20080405
  Serious: Yes (Hospitalization)
  Sender: FDA-Public Use
  Company Number: US-ASTRAZENECA-2007UW00941

PATIENT
  Age: 21168 Day
  Sex: Male
  Weight: 70.9 kg

DRUGS (15)
  1. ROSUVASTATIN [Suspect]
     Route: 048
     Dates: start: 20060804, end: 20060824
  2. ROSUVASTATIN [Suspect]
     Route: 048
     Dates: start: 20060828
  3. ABT-335 [Suspect]
     Indication: DYSLIPIDAEMIA
     Route: 048
     Dates: start: 20060804, end: 20060824
  4. ABT-335 [Suspect]
     Route: 048
     Dates: start: 20060828
  5. FLUTICASONE PROPIONATE [Concomitant]
     Indication: SEASONAL ALLERGY
     Dates: start: 19900101
  6. ASTELIN [Concomitant]
     Indication: SEASONAL ALLERGY
     Dates: start: 19900101
  7. CELECOXIB [Concomitant]
     Indication: ANTIINFLAMMATORY THERAPY
     Dates: start: 19950228
  8. OXYCODONE HCL [Concomitant]
     Indication: BACK PAIN
     Dates: start: 19960701
  9. FLUOXETINE HYDROCHLORIDE [Concomitant]
     Indication: DEPRESSION
     Dates: start: 19960101
  10. OLANZAPINE [Concomitant]
     Indication: ANXIETY
     Dates: start: 20051114
  11. ESOMEPRAZOLE [Concomitant]
     Indication: GASTROOESOPHAGEAL REFLUX DISEASE
     Dates: start: 20040101
  12. VITAMIN CAP [Concomitant]
     Indication: SUPPLEMENTATION THERAPY
     Dates: start: 20010101
  13. LUNESTA [Concomitant]
     Indication: INSOMNIA
     Dates: start: 20060525
  14. HYDROMORPHONE HYDROCHLORIDE [Concomitant]
     Indication: ABDOMINAL PAIN UPPER
     Dates: start: 20060530, end: 20060530
  15. PHENERGAN HCL [Concomitant]
     Indication: NAUSEA
     Dates: start: 20060530, end: 20060530

REACTIONS (4)
  - ABDOMINAL PAIN UPPER [None]
  - DIARRHOEA [None]
  - NAUSEA [None]
  - VOMITING [None]
